FAERS Safety Report 7954859-1 (Version None)
Quarter: 2011Q4

REPORT INFORMATION
  Report Type: 
  Country: None (occurrence: None)
  Receive Date: 20111202
  Receipt Date: 20111122
  Transmission Date: 20120403
  Serious: Yes (Other)
  Sender: FDA-Public Use
  Company Number: US-PERRIGO-11US009866

PATIENT
  Age: 32 Year
  Sex: Male

DRUGS (2)
  1. PSEUDEOPHEDRINE HCL [Suspect]
     Indication: HYPERSENSITIVITY
     Dosage: 1 TABLET, EVERY 12 HOURS
     Route: 048
     Dates: start: 20111030, end: 20111105
  2. PSEUDEOPHEDRINE HCL [Suspect]
     Indication: NASAL CONGESTION

REACTIONS (2)
  - SYNCOPE [None]
  - INSOMNIA [None]
